FAERS Safety Report 8930022 (Version 2)
Quarter: 2012Q4

REPORT INFORMATION
  Report Type: 
  Country: US (occurrence: US)
  Receive Date: 20121121
  Receipt Date: 20121212
  Transmission Date: 20130627
  Serious: Yes (Death, Hospitalization)
  Sender: FDA-Public Use
  Company Number: US-ASTELLAS-CID000000002084449

PATIENT
  Sex: Male

DRUGS (1)
  1. TARCEVA [Suspect]
     Indication: MALIGNANT RESPIRATORY TRACT NEOPLASM
     Route: 048
     Dates: start: 20050301

REACTIONS (4)
  - Pleural effusion [Fatal]
  - Lung cancer metastatic [Fatal]
  - Hypercoagulation [Fatal]
  - Prostate cancer [Fatal]
